FAERS Safety Report 9281814 (Version 1)
Quarter: 2013Q2

REPORT INFORMATION
  Report Type: Report from Study
  Country: GB (occurrence: GB)
  Receive Date: 20130510
  Receipt Date: 20130510
  Transmission Date: 20140414
  Serious: Yes (Death)
  Sender: FDA-Public Use
  Company Number: GB-AMGEN-GBRCT2013032216

PATIENT
  Age: 55 Year
  Sex: Female
  Weight: 59 kg

DRUGS (5)
  1. ETANERCEPT [Suspect]
     Indication: RHEUMATOID ARTHRITIS
     Dosage: 25 MG, 2 TIMES/WK
     Route: 058
     Dates: start: 20040810
  2. ARCOXIA [Concomitant]
     Dosage: UNK
     Route: 065
  3. LOSEC [Concomitant]
     Dosage: UNK
     Route: 065
  4. TEMAZEPAM [Concomitant]
     Dosage: UNK
     Route: 065
  5. ZYDOL [Concomitant]
     Dosage: UNK
     Route: 065

REACTIONS (5)
  - Disseminated intravascular coagulation [Fatal]
  - Hepatic steatosis [Fatal]
  - Intestinal obstruction [Fatal]
  - Diverticulum [Fatal]
  - Arteriosclerosis coronary artery [Fatal]
